FAERS Safety Report 25806607 (Version 2)
Quarter: 2025Q3

REPORT INFORMATION
  Report Type: Spontaneous
  Country: EU (occurrence: EU)
  Receive Date: 20250916
  Receipt Date: 20250923
  Transmission Date: 20251020
  Serious: Yes (Hospitalization)
  Sender: AMGEN
  Company Number: EU-002147023-NVSC2025DE143319

PATIENT
  Sex: Female

DRUGS (2)
  1. AIMOVIG [Suspect]
     Active Substance: ERENUMAB-AOOE
     Indication: Migraine
     Route: 065
     Dates: start: 202404, end: 202411
  2. AIMOVIG [Suspect]
     Active Substance: ERENUMAB-AOOE
     Dosage: 140 MG, Q4W (140 MG)
     Route: 065
     Dates: start: 202411

REACTIONS (5)
  - Tonsillitis bacterial [Unknown]
  - Rhinitis [Unknown]
  - Ear infection [Unknown]
  - Pharyngitis [Unknown]
  - Skin papilloma [Unknown]

NARRATIVE: CASE EVENT DATE: 20250907
